FAERS Safety Report 9672259 (Version 1)
Quarter: 2013Q4

REPORT INFORMATION
  Report Type: Report from Study
  Country: AR (occurrence: AR)
  Receive Date: 20131106
  Receipt Date: 20131106
  Transmission Date: 20140711
  Serious: Yes (Death)
  Sender: FDA-Public Use
  Company Number: PHHY2013AR126045

PATIENT
  Sex: Male

DRUGS (1)
  1. TRILEPTAL / GP 47680 / TRI 476B [Suspect]
     Indication: CONVULSION
     Dosage: UNK UKN, UNK
     Route: 048

REACTIONS (1)
  - Death [Fatal]
